FAERS Safety Report 12974770 (Version 2)
Quarter: 2017Q1

REPORT INFORMATION
  Report Type: Spontaneous
  Country: FR (occurrence: FR)
  Receive Date: 20161125
  Receipt Date: 20170103
  Transmission Date: 20170428
  Serious: Yes (Other)
  Sender: FDA-Public Use
  Company Number: FR-AUROBINDO-AUR-APL-2016-14290

PATIENT
  Age: 25 Year
  Sex: Male

DRUGS (12)
  1. ENOXAPARIN [Concomitant]
     Active Substance: ENOXAPARIN
     Indication: EPILEPSY
     Route: 065
  2. THIOPENTAL [Concomitant]
     Active Substance: THIOPENTAL
     Indication: SEDATION
  3. PROPOFOL. [Concomitant]
     Active Substance: PROPOFOL
     Indication: EPILEPSY
     Route: 065
  4. LEVETIRACETAM. [Suspect]
     Active Substance: LEVETIRACETAM
     Indication: EPILEPSY
     Dosage: 500 MG, TWO TIMES A DAY
  5. CLONAZEPAM. [Concomitant]
     Active Substance: CLONAZEPAM
     Indication: SEIZURE
     Dosage: 1 MG, CLONAZEPAM 1 MG TWICE
     Route: 065
  6. FOSPHENYTOIN [Concomitant]
     Active Substance: FOSPHENYTOIN\FOSPHENYTOIN SODIUM
     Indication: SEIZURE
     Dosage: 1.5 G, UNK
     Route: 065
  7. CLOBAZAM [Concomitant]
     Active Substance: CLOBAZAM
     Indication: EPILEPSY
     Dosage: 5 MG THRICE DAILY ON DAY 1
     Route: 065
  8. SUXAMETHONIUM [Concomitant]
     Active Substance: SUCCINYLCHOLINE
     Indication: ENDOTRACHEAL INTUBATION
     Route: 065
  9. CLOBAZAM [Concomitant]
     Active Substance: CLOBAZAM
     Dosage: 5 MG TWICE DAILY ON DAY 4
     Route: 065
  10. ESOMEPRAZOLE [Concomitant]
     Active Substance: ESOMEPRAZOLE
     Indication: PRODUCT USED FOR UNKNOWN INDICATION
     Dosage: 40 MG, UNK
     Route: 065
  11. SUFENTANIL [Concomitant]
     Active Substance: SUFENTANIL
     Indication: SEDATION
     Route: 041
  12. THIOPENTAL [Concomitant]
     Active Substance: THIOPENTAL
     Indication: SEIZURE
     Route: 065

REACTIONS (1)
  - Blood creatine phosphokinase increased [Recovering/Resolving]
